FAERS Safety Report 5854347-2 (Version None)
Quarter: 2008Q3

REPORT INFORMATION
  Report Type: 
  Country: None (occurrence: None)
  Receive Date: 20080822
  Receipt Date: 20080820
  Transmission Date: 20090109
  Serious: Yes (Death)
  Sender: FDA-Public Use
  Company Number: US-BOEHRINGER INGELHEIM GMBH, GERMANY-2008-DE-04572GD

PATIENT
  Age: 75 Year
  Sex: Male

DRUGS (8)
  1. FLOMAX [Suspect]
  2. OXAZEPAM [Suspect]
  3. PREDNISONE TAB [Suspect]
  4. OXYCODONE HCL [Suspect]
  5. ZAROXOLYN [Suspect]
  6. POTASSIUM CHLORIDE [Suspect]
  7. PAXIL [Suspect]
  8. FUROSEMIDE [Suspect]

REACTIONS (3)
  - DEATH [None]
  - LOSS OF CONSCIOUSNESS [None]
  - ROAD TRAFFIC ACCIDENT [None]
